FAERS Safety Report 10249792 (Version 1)
Quarter: 2014Q2

REPORT INFORMATION
  Report Type: Spontaneous
  Country: US (occurrence: US)
  Receive Date: 20140620
  Receipt Date: 20140620
  Transmission Date: 20141212
  Serious: No
  Sender: FDA-Public Use
  Company Number: US-PFIZER INC-2014168492

PATIENT
  Sex: Female

DRUGS (1)
  1. GENOTROPIN [Suspect]

REACTIONS (3)
  - Myalgia [Unknown]
  - Carpal tunnel syndrome [Unknown]
  - Joint stiffness [Unknown]
